FAERS Safety Report 4464356-6 (Version None)
Quarter: 2004Q4

REPORT INFORMATION
  Report Type: 
  Country: None (occurrence: None)
  Receive Date: 20041001
  Receipt Date: 20031209
  Transmission Date: 20050328
  Serious: Yes (Hospitalization, Disabling)
  Sender: FDA-Public Use
  Company Number: US-MERCK-0312USA00993

PATIENT
  Age: 35 Year
  Sex: Male
  Weight: 93 kg

DRUGS (9)
  1. TYLENOL [Concomitant]
     Indication: HEADACHE
     Route: 065
     Dates: start: 19950101, end: 20011217
  2. TYLENOL [Concomitant]
     Indication: PAIN
     Route: 065
     Dates: start: 19950101, end: 20011217
  3. PERCOCET [Concomitant]
     Route: 065
  4. ALUMINUM HYDROXIDE AND MAGNESIUM TRISILICATE [Concomitant]
     Route: 065
  5. ADVIL [Concomitant]
     Indication: HEADACHE
     Route: 065
     Dates: start: 19950101, end: 20011217
  6. ADVIL [Concomitant]
     Indication: PAIN
     Route: 065
     Dates: start: 19950101, end: 20011217
  7. MEDROL [Concomitant]
     Route: 065
  8. VIOXX [Suspect]
     Indication: BACK PAIN
     Route: 048
     Dates: start: 20011201, end: 20011217
  9. IMITREX [Concomitant]
     Indication: MIGRAINE
     Route: 065
     Dates: start: 19950101, end: 20011217

REACTIONS (16)
  - ACUTE MYOCARDIAL INFARCTION [None]
  - AKINESIA [None]
  - BRADYCARDIA [None]
  - CORONARY ARTERY STENOSIS [None]
  - DEPRESSION [None]
  - EJECTION FRACTION DECREASED [None]
  - EMOTIONAL DISTRESS [None]
  - FATIGUE [None]
  - GASTRITIS [None]
  - GASTROOESOPHAGEAL REFLUX DISEASE [None]
  - HYPERCHOLESTEROLAEMIA [None]
  - HYPOTENSION [None]
  - INTERVERTEBRAL DISC DEGENERATION [None]
  - INTERVERTEBRAL DISC PROTRUSION [None]
  - URINARY RETENTION [None]
  - VENTRICULAR TACHYCARDIA [None]
